FAERS Safety Report 4842036-2 (Version None)
Quarter: 2005Q4

REPORT INFORMATION
  Report Type: 
  Country: None (occurrence: None)
  Receive Date: 20051130
  Receipt Date: 20051122
  Transmission Date: 20060501
  Serious: Yes (Hospitalization)
  Sender: FDA-Public Use
  Company Number: JP-JNJFOC-20051105978

PATIENT
  Age: 49 Year
  Sex: Male

DRUGS (4)
  1. ITRIZOLE [Suspect]
     Indication: DRUG USE FOR UNKNOWN INDICATION
     Route: 048
     Dates: start: 20051110, end: 20051110
  2. PAROXETINE HYDROCHLORIDE [Concomitant]
     Route: 048
  3. DIAZEPAM [Concomitant]
     Route: 048
  4. BROTIZOLAM [Concomitant]
     Route: 048

REACTIONS (2)
  - DYSGEUSIA [None]
  - VOMITING [None]
